FAERS Safety Report 21558557 (Version 2)
Quarter: 2022Q4

REPORT INFORMATION
  Report Type: Spontaneous
  Country: US (occurrence: US)
  Receive Date: 20221107
  Receipt Date: 20221125
  Transmission Date: 20230112
  Serious: No
  Sender: FDA-Public Use
  Company Number: US-JNJFOC-20221103104

PATIENT
  Age: 59 Year
  Sex: Female

DRUGS (2)
  1. WOMENS ROGAINE [Suspect]
     Active Substance: MINOXIDIL
     Indication: Alopecia
     Dosage: RECOMMENDED AMOUNT OF 1 ML
     Route: 061
     Dates: start: 20221017, end: 202210
  2. WOMENS ROGAINE [Suspect]
     Active Substance: MINOXIDIL
     Dosage: RECOMMENDED AMOUNT OF 1 ML
     Route: 061
     Dates: start: 20221017

REACTIONS (3)
  - Illness [Recovered/Resolved]
  - Breath odour [Recovered/Resolved]
  - Parosmia [Recovered/Resolved]

NARRATIVE: CASE EVENT DATE: 20221017
